FAERS Safety Report 21327576 (Version 1)
Quarter: 2022Q3

REPORT INFORMATION
  Report Type: Spontaneous
  Country: US (occurrence: None)
  Receive Date: 20220913
  Receipt Date: 20220913
  Transmission Date: 20221027
  Serious: Yes (Death, Hospitalization)
  Sender: FDA-Public Use
  Company Number: None

PATIENT
  Age: 45 Year
  Sex: Female
  Weight: 55.3 kg

DRUGS (1)
  1. TEMOZOLOMIDE [Suspect]
     Active Substance: TEMOZOLOMIDE
     Dates: end: 20220823

REACTIONS (20)
  - Hyperhidrosis [None]
  - Chest pain [None]
  - Malaise [None]
  - Metabolic disorder [None]
  - White blood cell count decreased [None]
  - Blood creatinine increased [None]
  - Blood potassium increased [None]
  - Hypoxia [None]
  - Acute pulmonary oedema [None]
  - SARS-CoV-2 test positive [None]
  - Encephalopathy [None]
  - Toxic encephalopathy [None]
  - Respiratory acidosis [None]
  - Metabolic acidosis [None]
  - Cardiac dysfunction [None]
  - Peripheral coldness [None]
  - Hypotension [None]
  - Pulseless electrical activity [None]
  - Cardiac arrest [None]
  - Blood calcium decreased [None]

NARRATIVE: CASE EVENT DATE: 20220904
